FAERS Safety Report 10969096 (Version 1)
Quarter: 2015Q1

REPORT INFORMATION
  Report Type: Spontaneous
  Country: US (occurrence: US)
  Receive Date: 20150331
  Receipt Date: 20150331
  Transmission Date: 20150721
  Serious: Yes (Hospitalization, Disabling)
  Sender: FDA-Public Use
  Company Number: PHHY2015US033360

PATIENT
  Age: 40 Year
  Sex: Female

DRUGS (2)
  1. TEGRETOL [Suspect]
     Active Substance: CARBAMAZEPINE
     Dosage: 200 MG, TID
     Route: 048
  2. TEGRETOL [Suspect]
     Active Substance: CARBAMAZEPINE
     Indication: PAIN IN EXTREMITY
     Dosage: 200 MG, BID
     Route: 048

REACTIONS (8)
  - Malaise [Recovered/Resolved]
  - Eye disorder [Recovered/Resolved]
  - Product use issue [Unknown]
  - Blindness [Not Recovered/Not Resolved]
  - Corneal defect [Unknown]
  - Oral mucosal blistering [Recovered/Resolved]
  - Stevens-Johnson syndrome [Recovering/Resolving]
  - Visual impairment [Not Recovered/Not Resolved]
